FAERS Safety Report 24182762 (Version 3)
Quarter: 2024Q3

REPORT INFORMATION
  Report Type: Spontaneous
  Country: NZ (occurrence: NZ)
  Receive Date: 20240807
  Receipt Date: 20240829
  Transmission Date: 20241017
  Serious: Yes (Hospitalization)
  Sender: ASTELLAS
  Company Number: NZ-ROCHE-10000044262

PATIENT
  Age: 72 Year
  Sex: Male
  Weight: 69 kg

DRUGS (21)
  1. ERLOTINIB [Suspect]
     Active Substance: ERLOTINIB
     Indication: Arthralgia
     Dosage: UNK UNK, UNKNOWN FREQ.
     Route: 065
  2. ERLOTINIB [Suspect]
     Active Substance: ERLOTINIB
     Indication: Blood calcium decreased
  3. ERLOTINIB [Suspect]
     Active Substance: ERLOTINIB
     Indication: Constipation
  4. ERLOTINIB [Suspect]
     Active Substance: ERLOTINIB
     Indication: Hepatic cancer
  5. ERLOTINIB [Suspect]
     Active Substance: ERLOTINIB
     Indication: Hepatitis B
  6. ERLOTINIB [Suspect]
     Active Substance: ERLOTINIB
     Indication: Myalgia
  7. SORAFENIB [Suspect]
     Active Substance: SORAFENIB
     Indication: Arthralgia
     Dosage: UNK UNK, UNKNOWN FREQ.
     Route: 065
  8. SORAFENIB [Suspect]
     Active Substance: SORAFENIB
     Indication: Blood calcium decreased
  9. SORAFENIB [Suspect]
     Active Substance: SORAFENIB
     Indication: Constipation
  10. SORAFENIB [Suspect]
     Active Substance: SORAFENIB
     Indication: Hepatic cancer
  11. SORAFENIB [Suspect]
     Active Substance: SORAFENIB
     Indication: Hepatitis B
  12. SORAFENIB [Suspect]
     Active Substance: SORAFENIB
     Indication: Myalgia
  13. VOLTAREN XR [Suspect]
     Active Substance: DICLOFENAC SODIUM
     Indication: Arthralgia
     Dosage: UNK UNK, UNKNOWN FREQ.
     Route: 065
  14. VOLTAREN XR [Suspect]
     Active Substance: DICLOFENAC SODIUM
     Indication: Blood calcium decreased
  15. VOLTAREN XR [Suspect]
     Active Substance: DICLOFENAC SODIUM
     Indication: Constipation
  16. VOLTAREN XR [Suspect]
     Active Substance: DICLOFENAC SODIUM
     Indication: Hepatic cancer
  17. VOLTAREN XR [Suspect]
     Active Substance: DICLOFENAC SODIUM
     Indication: Hepatitis B
  18. VOLTAREN XR [Suspect]
     Active Substance: DICLOFENAC SODIUM
     Indication: Myalgia
  19. DOCUSATE SODIUM [Concomitant]
     Active Substance: DOCUSATE SODIUM
     Dosage: UNK UNK, UNKNOWN FREQ.
     Route: 065
  20. CALCIUM CARBONATE [Concomitant]
     Active Substance: CALCIUM CARBONATE
     Dosage: UNK UNK, UNKNOWN FREQUENCY
     Route: 065
  21. ENTECAVIR [Concomitant]
     Active Substance: ENTECAVIR
     Dosage: UNK UNK, UNKNOWN FREQUENCY
     Route: 065

REACTIONS (2)
  - Gastric ulcer [Unknown]
  - Off label use [Unknown]

NARRATIVE: CASE EVENT DATE: 20100806
